FAERS Safety Report 19179050 (Version 1)
Quarter: 2021Q2

REPORT INFORMATION
  Report Type: Spontaneous
  Country: US (occurrence: US)
  Receive Date: 20210423
  Receipt Date: 20210423
  Transmission Date: 20210717
  Serious: Yes (Hospitalization)
  Sender: FDA-Public Use
  Company Number: None

PATIENT
  Age: 59 Year
  Sex: Female
  Weight: 104 kg

DRUGS (4)
  1. YESCARTA [Suspect]
     Active Substance: AXICABTAGENE CILOLEUCEL
     Indication: DIFFUSE LARGE B-CELL LYMPHOMA
     Dosage: ?          OTHER FREQUENCY:ONCE;?
     Route: 041
     Dates: start: 20201117, end: 20201117
  2. LEVETIRACETAM (KEPPRA [Concomitant]
     Dates: start: 20201116, end: 20201231
  3. ACYCLOVIR (ZOVIRAX) [Concomitant]
     Dates: start: 20201117, end: 20210423
  4. DEXAMETHASONE (DECADRON [Concomitant]
     Dates: start: 20201121, end: 20201130

REACTIONS (4)
  - Pyrexia [None]
  - Immune effector cell-associated neurotoxicity syndrome [None]
  - Febrile neutropenia [None]
  - Enterocutaneous fistula [None]

NARRATIVE: CASE EVENT DATE: 20201117
